FAERS Safety Report 24657997 (Version 1)
Quarter: 2024Q4

REPORT INFORMATION
  Report Type: Spontaneous
  Country: US (occurrence: US)
  Receive Date: 20241125
  Receipt Date: 20241125
  Transmission Date: 20250115
  Serious: No
  Sender: Kenvue
  Company Number: US-KENVUE-20241032404

PATIENT
  Age: 3 Year
  Sex: Female

DRUGS (1)
  1. MOTRIN [Suspect]
     Active Substance: IBUPROFEN
     Indication: Accidental exposure to product by child
     Dosage: 1 DOSAGE FORM
     Route: 065

REACTIONS (2)
  - Failure of child resistant product closure [Unknown]
  - Accidental exposure to product by child [Unknown]
